FAERS Safety Report 13205948 (Version 1)
Quarter: 2017Q1

REPORT INFORMATION
  Report Type: Report from Study
  Country: US (occurrence: US)
  Receive Date: 20170209
  Receipt Date: 20170209
  Transmission Date: 20170428
  Serious: Yes (Hospitalization, Other)
  Sender: FDA-Public Use
  Company Number: US-SAOL THERAPEUTICS-2017SAO00240

PATIENT
  Sex: Male

DRUGS (44)
  1. COMPOUNDED BACLOFEN [Suspect]
     Active Substance: BACLOFEN
     Dosage: 133.35 ?G, \DAY
     Route: 037
     Dates: start: 20160714, end: 20160811
  2. COMPOUNDED BACLOFEN [Suspect]
     Active Substance: BACLOFEN
     Dosage: 196.01 ?G, \DAY
     Route: 037
     Dates: start: 20160714, end: 20160811
  3. HYDROMORPHONE HCL [Suspect]
     Active Substance: HYDROMORPHONE HYDROCHLORIDE
     Dosage: 3.428 MG, \DAY
     Route: 037
     Dates: start: 20160811
  4. BUPIVACAINE. [Suspect]
     Active Substance: BUPIVACAINE
     Dosage: 17.479 MG, \DAY
     Route: 037
     Dates: start: 20160315, end: 20160426
  5. BUPIVACAINE. [Suspect]
     Active Substance: BUPIVACAINE
     Dosage: 25.082 MG, \DAY
     Route: 037
     Dates: start: 20160315, end: 20160426
  6. COMPOUNDED BACLOFEN [Suspect]
     Active Substance: BACLOFEN
     Dosage: 106.6 ?G, \DAY
     Route: 037
     Dates: start: 20160630
  7. COMPOUNDED BACLOFEN [Suspect]
     Active Substance: BACLOFEN
     Dosage: 166.54 ?G, \DAY
     Route: 037
     Dates: start: 20160811
  8. COMPOUNDED BACLOFEN [Suspect]
     Active Substance: BACLOFEN
     Dosage: 262.78 ?G, \DAY
     Route: 037
  9. HYDROMORPHONE HCL [Suspect]
     Active Substance: HYDROMORPHONE HYDROCHLORIDE
     Dosage: 1.599 MG, \DAY
     Route: 037
     Dates: start: 20160630
  10. BUPIVACAINE. [Suspect]
     Active Substance: BUPIVACAINE
     Dosage: 14.515 MG, \DAY
     Route: 037
     Dates: start: 20160426, end: 20160630
  11. BUPIVACAINE. [Suspect]
     Active Substance: BUPIVACAINE
     Dosage: 19.589 MG, \DAY
     Route: 037
     Dates: start: 20160913, end: 20160927
  12. BUPIVACAINE. [Suspect]
     Active Substance: BUPIVACAINE
     Dosage: 12.491 MG, \DAY
     Route: 037
     Dates: start: 20160811
  13. COMPOUNDED BACLOFEN [Suspect]
     Active Substance: BACLOFEN
     Dosage: 224.73 ?G, \DAY
     Route: 037
     Dates: start: 20160913, end: 20160927
  14. HYDROMORPHONE HCL [Suspect]
     Active Substance: HYDROMORPHONE HYDROCHLORIDE
     Dosage: 2.5082 MG, \DAY
     Route: 037
     Dates: start: 20160315, end: 20160426
  15. HYDROMORPHONE HCL [Suspect]
     Active Substance: HYDROMORPHONE HYDROCHLORIDE
     Dosage: 3.9177 MG, \DAY
     Route: 037
     Dates: start: 20160913, end: 20160927
  16. CLONIDINE. [Suspect]
     Active Substance: CLONIDINE
     Dosage: 87.59 ?G, \DAY
     Route: 037
     Dates: start: 20160927
  17. CLONIDINE. [Suspect]
     Active Substance: CLONIDINE
     Dosage: 113.9 ?G, \DAY
     Route: 037
     Dates: start: 20160927
  18. COMPOUNDED BACLOFEN [Suspect]
     Active Substance: BACLOFEN
     Dosage: 116.53 ?G, \DAY
     Route: 037
     Dates: start: 20160315, end: 20160426
  19. COMPOUNDED BACLOFEN [Suspect]
     Active Substance: BACLOFEN
     Dosage: UNK
  20. HYDROMORPHONE HCL [Suspect]
     Active Substance: HYDROMORPHONE HYDROCHLORIDE
     Dosage: 1.4515 MG, \DAY
     Route: 037
     Dates: start: 20160426, end: 20160630
  21. HYDROMORPHONE HCL [Suspect]
     Active Substance: HYDROMORPHONE HYDROCHLORIDE
     Dosage: 2.0002 MG, \DAY
     Route: 037
     Dates: start: 20160714, end: 20160811
  22. HYDROMORPHONE HCL [Suspect]
     Active Substance: HYDROMORPHONE HYDROCHLORIDE
     Dosage: 2.498 MG, \DAY
     Route: 037
     Dates: start: 20160811
  23. HYDROMORPHONE HCL [Suspect]
     Active Substance: HYDROMORPHONE HYDROCHLORIDE
     Dosage: 2.365 ?G, \DAY
     Dates: start: 20160630
  24. HYDROMORPHONE HCL [Suspect]
     Active Substance: HYDROMORPHONE HYDROCHLORIDE
     Dosage: 4.556 MG, \DAY
     Route: 037
     Dates: start: 20160927
  25. BUPIVACAINE. [Suspect]
     Active Substance: BUPIVACAINE
     Dosage: 7.995 MG, \DAY
     Route: 037
     Dates: start: 20160630
  26. COMPOUNDED BACLOFEN [Suspect]
     Active Substance: BACLOFEN
     Dosage: 157.68 ?G, \DAY
     Route: 037
     Dates: start: 20160630
  27. COMPOUNDED BACLOFEN [Suspect]
     Active Substance: BACLOFEN
     Dosage: 228.56 UNK, \DAY
     Dates: start: 20160811
  28. COMPOUNDED BACLOFEN [Suspect]
     Active Substance: BACLOFEN
     Dosage: 341.7 ?G, \DAY
     Route: 037
     Dates: start: 20160927
  29. HYDROMORPHONE HCL [Suspect]
     Active Substance: HYDROMORPHONE HYDROCHLORIDE
     Dosage: 2.9965 MG, \DAY
     Route: 037
     Dates: start: 20160913, end: 20160927
  30. BUPIVACAINE. [Suspect]
     Active Substance: BUPIVACAINE
     Dosage: 22.183 MG, \DAY
     Route: 037
     Dates: start: 20160426, end: 20160630
  31. BUPIVACAINE. [Suspect]
     Active Substance: BUPIVACAINE
     Dosage: 14.701 MG, \DAY
     Route: 037
     Dates: start: 20160714, end: 20160811
  32. BUPIVACAINE. [Suspect]
     Active Substance: BUPIVACAINE
     Dosage: 14.982 MG, \DAY
     Route: 037
     Dates: start: 20160913, end: 20160927
  33. COMPOUNDED BACLOFEN [Suspect]
     Active Substance: BACLOFEN
     Dosage: 167.21 ?G, \DAY
     Route: 037
     Dates: start: 20160315, end: 20160426
  34. COMPOUNDED BACLOFEN [Suspect]
     Active Substance: BACLOFEN
     Dosage: 293.83 ?G, \DAY
     Route: 037
     Dates: start: 20160913, end: 20160927
  35. BUPIVACAINE. [Suspect]
     Active Substance: BUPIVACAINE
     Dosage: 17.142 MG, \DAY
     Route: 037
     Dates: start: 20160811
  36. COMPOUNDED BACLOFEN [Suspect]
     Active Substance: BACLOFEN
     Dosage: 96.77 ?G, \DAY
     Route: 037
     Dates: start: 20160426, end: 20160630
  37. COMPOUNDED BACLOFEN [Suspect]
     Active Substance: BACLOFEN
     Dosage: 147.89 ?G, \DAY
     Route: 037
     Dates: start: 20160426, end: 20160630
  38. HYDROMORPHONE HCL [Suspect]
     Active Substance: HYDROMORPHONE HYDROCHLORIDE
     Dosage: 1.7479 MG, \DAY
     Route: 037
     Dates: start: 20160315, end: 20160426
  39. HYDROMORPHONE HCL [Suspect]
     Active Substance: HYDROMORPHONE HYDROCHLORIDE
     Dosage: 2.2183 MG, \DAY
     Route: 037
     Dates: start: 20160426, end: 20160630
  40. HYDROMORPHONE HCL [Suspect]
     Active Substance: HYDROMORPHONE HYDROCHLORIDE
     Dosage: 2.9402 MG, \DAY
     Route: 037
     Dates: start: 20160614, end: 20160811
  41. HYDROMORPHONE HCL [Suspect]
     Active Substance: HYDROMORPHONE HYDROCHLORIDE
     Dosage: 3.5038 MG, \DAY
     Route: 037
     Dates: start: 20160927
  42. BUPIVACAINE. [Suspect]
     Active Substance: BUPIVACAINE
     Dosage: 10.001 MG, \DAY
     Route: 037
     Dates: start: 20160714, end: 20160811
  43. CLONIDINE. [Suspect]
     Active Substance: CLONIDINE
     Dosage: 74.91 ?G, \DAY
     Route: 037
     Dates: start: 20160913, end: 20160927
  44. CLONIDINE. [Suspect]
     Active Substance: CLONIDINE
     Dosage: 97.94 ?G, \DAY
     Route: 037
     Dates: start: 20160913, end: 20160927

REACTIONS (5)
  - Medical device site pain [Recovered/Resolved]
  - Medical device site swelling [Recovered/Resolved]
  - Drug dose omission [Recovered/Resolved]
  - Hypoaesthesia [Recovered/Resolved]
  - Withdrawal syndrome [Recovered/Resolved]

NARRATIVE: CASE EVENT DATE: 20160426
